FAERS Safety Report 6705276-3 (Version None)
Quarter: 2010Q2

REPORT INFORMATION
  Report Type: 
  Country: None (occurrence: None)
  Receive Date: 20100430
  Receipt Date: 20100429
  Transmission Date: 20101027
  Serious: Yes (Death)
  Sender: FDA-Public Use
  Company Number: CN-ROCHE-700048

PATIENT
  Sex: Male

DRUGS (2)
  1. MYCOPHENOLATE MOFETIL [Suspect]
     Indication: RENAL TRANSPLANT
     Dosage: 1000 MG IN THE MORNING AND 1000 MG IN THE EVENING.
     Route: 048
     Dates: start: 20030801
  2. SANDIMMUNE [Concomitant]
     Indication: RENAL TRANSPLANT

REACTIONS (1)
  - AZOTAEMIA [None]
